FAERS Safety Report 7270327-7 (Version None)
Quarter: 2011Q1

REPORT INFORMATION
  Report Type: 
  Country: None (occurrence: None)
  Receive Date: 20110202
  Receipt Date: 20101223
  Transmission Date: 20110831
  Serious: Yes (Other)
  Sender: FDA-Public Use
  Company Number: US-BAYER-200934546NA

PATIENT
  Sex: Female

DRUGS (3)
  1. ZITHROMAX [Concomitant]
  2. YASMIN [Suspect]
     Indication: PRODUCT USED FOR UNKNOWN INDICATION
     Route: 048
     Dates: start: 20050201, end: 20061101
  3. YAZ [Suspect]
     Indication: PRODUCT USED FOR UNKNOWN INDICATION
     Route: 048
     Dates: start: 20050201, end: 20061101

REACTIONS (13)
  - CHILLS [None]
  - OROPHARYNGEAL PAIN [None]
  - COUGH [None]
  - PAIN [None]
  - PLEURITIC PAIN [None]
  - NASOPHARYNGITIS [None]
  - FLANK PAIN [None]
  - PULMONARY EMBOLISM [None]
  - NAUSEA [None]
  - DYSPNOEA [None]
  - PULMONARY ARTERY THROMBOSIS [None]
  - PYREXIA [None]
  - CHEST PAIN [None]
